FAERS Safety Report 7994451-6 (Version None)
Quarter: 2011Q4

REPORT INFORMATION
  Report Type: 
  Country: None (occurrence: None)
  Receive Date: 20111220
  Receipt Date: 20111103
  Transmission Date: 20120403
  Serious: No
  Sender: FDA-Public Use
  Company Number: US-GLAXOSMITHKLINE-A0951864A

PATIENT
  Age: 64 Year
  Sex: Male

DRUGS (3)
  1. DILANTIN [Concomitant]
  2. LAMICTAL [Suspect]
     Indication: CONVULSION
     Dosage: 200MG PER DAY
     Route: 048
     Dates: start: 20110401
  3. KEPPRA [Concomitant]

REACTIONS (6)
  - DIZZINESS [None]
  - VISION BLURRED [None]
  - FALL [None]
  - DYSSTASIA [None]
  - BALANCE DISORDER [None]
  - TREMOR [None]
